FAERS Safety Report 7820001-0 (Version None)
Quarter: 2011Q4

REPORT INFORMATION
  Report Type: 
  Country: None (occurrence: None)
  Receive Date: 20111018
  Receipt Date: 20111014
  Transmission Date: 20120403
  Serious: Yes (Hospitalization, Other)
  Sender: FDA-Public Use
  Company Number: US-PFIZER INC-2011054376

PATIENT
  Sex: Female

DRUGS (9)
  1. RANITIDINE [Concomitant]
     Indication: GASTROOESOPHAGEAL REFLUX DISEASE
     Dosage: UNK
     Dates: start: 20080211
  2. CHANTIX [Suspect]
     Indication: SMOKING CESSATION THERAPY
     Dosage: 1 MG, UNK
     Dates: start: 20080201, end: 20091001
  3. FLUTICASONE [Concomitant]
     Indication: ASTHMA
     Dosage: UNK
     Dates: start: 20050101
  4. ALBUTEROL [Concomitant]
     Indication: DYSPNOEA
     Dosage: UNK
     Dates: start: 20070101
  5. ALBUTEROL [Concomitant]
     Indication: ASTHMA
  6. OMEPRAZOLE [Concomitant]
     Indication: DUODENOGASTRIC REFLUX
     Dosage: UNK
     Dates: start: 20080718
  7. ESTRADIOL [Concomitant]
     Indication: HORMONE REPLACEMENT THERAPY
     Dosage: UNK
     Dates: start: 19940101, end: 20100101
  8. SALMETEROL [Concomitant]
     Indication: ASTHMA
     Dosage: UNK
     Dates: start: 20050101
  9. CETIRIZINE [Concomitant]
     Indication: HYPERSENSITIVITY
     Dosage: UNK
     Dates: start: 20050101

REACTIONS (4)
  - SUICIDE ATTEMPT [None]
  - MAJOR DEPRESSION [None]
  - INJURY [None]
  - INTENTIONAL OVERDOSE [None]
